FAERS Safety Report 4750065-2 (Version None)
Quarter: 2005Q3

REPORT INFORMATION
  Report Type: 
  Country: None (occurrence: None)
  Receive Date: 20050822
  Receipt Date: 20050808
  Transmission Date: 20060218
  Serious: Yes (Death, Hospitalization)
  Sender: FDA-Public Use
  Company Number: T05-GER-02609-01

PATIENT
  Age: 90 Year
  Sex: Female

DRUGS (5)
  1. MEMANTINE HCL [Suspect]
     Indication: DEMENTIA ALZHEIMER'S TYPE
     Dosage: 5 MG QD PO
     Route: 048
     Dates: start: 20050127
  2. MEMANTINE HCL [Suspect]
     Indication: DEMENTIA ALZHEIMER'S TYPE
     Dosage: 5 MG BID PO
     Route: 048
  3. ENALAPRIL [Concomitant]
  4. VALDECOXIB [Concomitant]
  5. ALLOPURINOL [Concomitant]

REACTIONS (2)
  - DEHYDRATION [None]
  - MULTI-ORGAN FAILURE [None]
